FAERS Safety Report 19577764 (Version 2)
Quarter: 2021Q3

REPORT INFORMATION
  Report Type: Report from Study
  Country: BR (occurrence: BR)
  Receive Date: 20210719
  Receipt Date: 20210823
  Transmission Date: 20211014
  Serious: Yes (Death, Other)
  Sender: FDA-Public Use
  Company Number: NVSC2021BR160461

PATIENT
  Sex: Female
  Weight: 57 kg

DRUGS (1)
  1. NILOTINIB [Suspect]
     Active Substance: NILOTINIB
     Indication: CHRONIC MYELOID LEUKAEMIA
     Dosage: 2 DF, BID
     Route: 048

REACTIONS (3)
  - Pulmonary hypertension [Unknown]
  - Ischaemic stroke [Recovered/Resolved]
  - Aortic valve disease [Fatal]

NARRATIVE: CASE EVENT DATE: 2014
